FAERS Safety Report 9538984 (Version 2)
Quarter: 2013Q4

REPORT INFORMATION
  Report Type: Report from Study
  Country: US (occurrence: US)
  Receive Date: 20130920
  Receipt Date: 20131008
  Transmission Date: 20140711
  Serious: Yes (Death)
  Sender: FDA-Public Use
  Company Number: US-ASTELLAS-2013US009798

PATIENT
  Sex: Female

DRUGS (1)
  1. ERLOTINIB TABLET [Suspect]
     Indication: CHOLANGIOCARCINOMA
     Dosage: 100 MG, UID/QD
     Route: 048
     Dates: start: 20130729, end: 20130909

REACTIONS (2)
  - Off label use [Unknown]
  - Bile duct cancer stage IV [Fatal]
